FAERS Safety Report 8612327-8 (Version None)
Quarter: 2012Q3

REPORT INFORMATION
  Report Type: 
  Country: None (occurrence: None)
  Receive Date: 20120810
  Receipt Date: 20120810
  Transmission Date: 20120928
  Serious: Yes (Life-Threatening, Hospitalization, Disabling, Other)
  Sender: FDA-Public Use
  Company Number: None

PATIENT
  Age: 45 Year
  Sex: Female
  Weight: 108.8633 kg

DRUGS (2)
  1. REMICADE [Suspect]
     Indication: PSORIATIC ARTHROPATHY
     Dosage: I1IV TREATMENT 1 MONTH THEN 2 THEN IV DRIP
     Route: 041
     Dates: start: 20110411, end: 20110827
  2. REMICADE [Suspect]
     Indication: PSORIASIS
     Dosage: I1IV TREATMENT 1 MONTH THEN 2 THEN IV DRIP
     Route: 041
     Dates: start: 20110411, end: 20110827

REACTIONS (7)
  - PNEUMONIA NECROTISING [None]
  - MALAISE [None]
  - LUNG NEOPLASM [None]
  - WOUND SECRETION [None]
  - WOUND [None]
  - IMMUNE SYSTEM DISORDER [None]
  - SYSTEMIC LUPUS ERYTHEMATOSUS [None]
